FAERS Safety Report 25618173 (Version 2)
Quarter: 2025Q3

REPORT INFORMATION
  Report Type: Spontaneous
  Country: US (occurrence: US)
  Receive Date: 20250729
  Receipt Date: 20250915
  Transmission Date: 20251020
  Serious: No
  Sender: SANOFI AVENTIS
  Company Number: US-SA-2025SA218257

PATIENT
  Age: 77 Year
  Sex: Female

DRUGS (4)
  1. KEVZARA [Suspect]
     Active Substance: SARILUMAB
     Indication: Rheumatoid arthritis
     Dosage: 200 MG, QOW
     Route: 058
     Dates: start: 202506, end: 2025
  2. KEVZARA [Suspect]
     Active Substance: SARILUMAB
     Indication: Osteoporosis
  3. PROLIA [Concomitant]
     Active Substance: DENOSUMAB
  4. ORENCIA [Concomitant]
     Active Substance: ABATACEPT

REACTIONS (3)
  - Injection site rash [Recovered/Resolved]
  - Peripheral swelling [Recovering/Resolving]
  - Pain [Unknown]

NARRATIVE: CASE EVENT DATE: 20250101
